FAERS Safety Report 6179324-6 (Version None)
Quarter: 2009Q2

REPORT INFORMATION
  Report Type: 
  Country: None (occurrence: None)
  Receive Date: 20090505
  Receipt Date: 20090428
  Transmission Date: 20091009
  Serious: Yes (Other)
  Sender: FDA-Public Use
  Company Number: US-JNJFOC-20090500040

PATIENT
  Sex: Female
  Weight: 58.97 kg

DRUGS (4)
  1. TOPAMAX [Suspect]
     Indication: MIGRAINE PROPHYLAXIS
     Route: 048
  2. TOPAMAX [Suspect]
     Indication: MOOD SWINGS
     Dosage: 1000MG/ONE 2* A DAY
     Route: 048
  3. WELLBUTRIN [Concomitant]
     Indication: MIGRAINE
     Route: 048
  4. WELLBUTRIN [Concomitant]
     Indication: MOOD SWINGS
     Route: 048

REACTIONS (2)
  - ABDOMINAL PAIN UPPER [None]
  - CHOLELITHIASIS [None]
